FAERS Safety Report 9797527 (Version 1)
Quarter: 2014Q1

REPORT INFORMATION
  Report Type: Spontaneous
  Country: JP (occurrence: JP)
  Receive Date: 20140106
  Receipt Date: 20140106
  Transmission Date: 20141002
  Serious: Yes (Death)
  Sender: FDA-Public Use
  Company Number: PHHY2013JP152676

PATIENT
  Sex: Female

DRUGS (2)
  1. NEORAL [Suspect]
     Indication: INTERSTITIAL LUNG DISEASE
     Dosage: 100 MG DAILY IN TWO DIVIDED DOSES
     Route: 048
  2. NEORAL [Suspect]
     Indication: OFF LABEL USE

REACTIONS (2)
  - Interstitial lung disease [Fatal]
  - Oral administration complication [Unknown]
